FAERS Safety Report 5747761-7 (Version None)
Quarter: 2008Q2

REPORT INFORMATION
  Report Type: 
  Country: None (occurrence: None)
  Receive Date: 20080523
  Receipt Date: 20080515
  Transmission Date: 20081010
  Serious: Yes (Hospitalization, Other)
  Sender: FDA-Public Use
  Company Number: ES-MERCK-0508ESP00006

PATIENT
  Age: 42 Year
  Sex: Male

DRUGS (12)
  1. ZETIA [Suspect]
     Indication: TYPE IIA HYPERLIPIDAEMIA
     Route: 048
     Dates: start: 20041228, end: 20050803
  2. ZETIA [Suspect]
     Indication: TYPE II HYPERLIPIDAEMIA
     Route: 048
     Dates: start: 20041228, end: 20050803
  3. ATORVASTATIN CALCIUM [Suspect]
     Indication: TYPE IIA HYPERLIPIDAEMIA
     Route: 048
     Dates: end: 20040315
  4. ATORVASTATIN CALCIUM [Suspect]
     Route: 048
     Dates: start: 20040316, end: 20050803
  5. ATORVASTATIN CALCIUM [Suspect]
     Indication: ISCHAEMIC CARDIOMYOPATHY
     Route: 048
     Dates: end: 20040315
  6. ATORVASTATIN CALCIUM [Suspect]
     Route: 048
     Dates: start: 20040316, end: 20050803
  7. PHENYTOIN [Suspect]
     Indication: EPILEPSY
     Route: 065
  8. VERAPAMIL [Concomitant]
     Indication: ISCHAEMIC CARDIOMYOPATHY
     Route: 065
  9. AMLODIPINE BESYLATE [Concomitant]
     Indication: ISCHAEMIC CARDIOMYOPATHY
     Route: 065
  10. CLOPIDOGREL BISULFATE [Concomitant]
     Route: 065
  11. ISOSORBIDE MONONITRATE [Concomitant]
     Indication: ISCHAEMIC CARDIOMYOPATHY
     Route: 065
  12. VITAMIN E [Concomitant]
     Route: 065

REACTIONS (2)
  - ALCOHOL USE [None]
  - RHABDOMYOLYSIS [None]
